FAERS Safety Report 14868076 (Version 1)
Quarter: 2018Q2

REPORT INFORMATION
  Report Type: Spontaneous
  Country: FR (occurrence: FR)
  Receive Date: 20180509
  Receipt Date: 20180509
  Transmission Date: 20180711
  Serious: Yes (Other)
  Sender: FDA-Public Use
  Company Number: FR-MERCK KGAA-2047433

PATIENT
  Age: 65 Year
  Sex: Female

DRUGS (1)
  1. NOVOTHYROX [Suspect]
     Active Substance: LEVOTHYROXINE SODIUM
     Indication: PRODUCT USED FOR UNKNOWN INDICATION

REACTIONS (18)
  - Dizziness [None]
  - Somnolence [None]
  - Anxiety [None]
  - Amnesia [None]
  - Alopecia [None]
  - Impaired driving ability [None]
  - Aphasia [None]
  - Asthenia [None]
  - Fatigue [None]
  - Depression [None]
  - Libido decreased [None]
  - Muscle spasms [None]
  - Stress [None]
  - Nervousness [None]
  - Gamma-glutamyltransferase increased [None]
  - Sleep disorder [None]
  - Headache [None]
  - Blood thyroid stimulating hormone increased [None]

NARRATIVE: CASE EVENT DATE: 20170504
